FAERS Safety Report 13193847 (Version 1)
Quarter: 2017Q1

REPORT INFORMATION
  Report Type: Spontaneous
  Country: IT (occurrence: IT)
  Receive Date: 20170207
  Receipt Date: 20170207
  Transmission Date: 20170428
  Serious: Yes (Other)
  Sender: FDA-Public Use
  Company Number: IT-TEVA-734958ACC

PATIENT
  Age: 50 Year
  Sex: Female
  Weight: 75 kg

DRUGS (3)
  1. SEQUACOR - 5 MG COMPRESSE RIVESTITE CON FILM BRACCO S.P.A. [Concomitant]
     Indication: HYPERTENSION
     Dates: start: 20151215
  2. COPAXONE [Suspect]
     Active Substance: GLATIRAMER ACETATE
     Indication: MULTIPLE SCLEROSIS
     Route: 058
     Dates: start: 20160501, end: 20170118
  3. LIORESAL - 25MG COMPRESSE NOVARTIS FARMA S.P.A. [Concomitant]
     Indication: MUSCLE SPASTICITY
     Dates: start: 20140515

REACTIONS (3)
  - Flushing [Recovering/Resolving]
  - Dyspnoea [Recovering/Resolving]
  - Fatigue [Recovering/Resolving]

NARRATIVE: CASE EVENT DATE: 20161115
